FAERS Safety Report 8647698 (Version 2)
Quarter: 2013Q1

REPORT INFORMATION
  Report Type: Spontaneous
  Country: US (occurrence: None)
  Receive Date: 20120621
  Receipt Date: 20121106
  Transmission Date: 20140127
  Serious: Yes (Hospitalization)
  Sender: FDA-Public Use
  Company Number: 2012-2726

PATIENT
  Age: 16 Year
  Sex: Male
  Weight: 48.53 kg

DRUGS (3)
  1. INCRELEX [Suspect]
     Indication: BODY HEIGHT BELOW NORMAL
     Dosage: 4.8 MG (2.4 MG (2.4 MG, 2 IN 1 D), SUBCUTANEOUS, 4.8 MG (2.4 MG, 2 IN 1 D), SUBCUTANEOUS
     Route: 058
     Dates: start: 201004, end: 201112
  2. INCRELEX [Suspect]
     Indication: OFF LABEL USE
     Dosage: 4.8 MG (2.4 MG (2.4 MG, 2 IN 1 D), SUBCUTANEOUS, 4.8 MG (2.4 MG, 2 IN 1 D), SUBCUTANEOUS
     Route: 058
     Dates: start: 201004, end: 201112
  3. NUTROPIN [Concomitant]

REACTIONS (5)
  - Depression [None]
  - Malnutrition [None]
  - Cardiac disorder [None]
  - Muscle atrophy [None]
  - Expired drug administered [None]
